FAERS Safety Report 7546327-6 (Version None)
Quarter: 2011Q2

REPORT INFORMATION
  Report Type: 
  Country: None (occurrence: None)
  Receive Date: 20110614
  Receipt Date: 20060424
  Transmission Date: 20111010
  Serious: Yes (Hospitalization, Other)
  Sender: FDA-Public Use
  Company Number: PHFR2006IE00633

PATIENT
  Sex: Male

DRUGS (11)
  1. CLOZAPINE [Suspect]
     Indication: SCHIZOPHRENIA
     Dosage: 600MG DAILY
     Route: 048
  2. ARIPIPRAZOLE [Concomitant]
     Dosage: 30 MG, DAILY
     Route: 048
     Dates: start: 20051218
  3. SPIRIVA [Concomitant]
     Indication: ASTHMA
     Dosage: 18 UG, DAILY
  4. PRILOSEC [Concomitant]
     Indication: PEPTIC ULCER
     Dosage: 20 MG, DAILY
     Route: 048
     Dates: start: 20040101
  5. COMBIVENT [Concomitant]
     Indication: ASTHMA
     Dosage: 2 PUFFS, BID
  6. CALOGEN [Concomitant]
     Dosage: 50 ML, DAILY
     Route: 048
     Dates: start: 20060210
  7. SENNA-MINT WAF [Concomitant]
  8. LACTULOSE [Concomitant]
     Indication: CONSTIPATION
     Dates: start: 20030101
  9. FLUOXETINE [Concomitant]
     Indication: DEPRESSION
     Dosage: 20 MG/DAY
     Route: 048
     Dates: start: 20040101, end: 20041213
  10. VALPROATE SODIUM [Concomitant]
     Dosage: 1.2 G/DAY
     Route: 048
     Dates: start: 20040706
  11. SERETIDE [Concomitant]

REACTIONS (11)
  - NEUROPATHY PERIPHERAL [None]
  - BACK PAIN [None]
  - CELLULITIS [None]
  - NEUROGENIC BLADDER [None]
  - NEUROLOGICAL SYMPTOM [None]
  - HYPOAESTHESIA [None]
  - TENDERNESS [None]
  - PUBIS FRACTURE [None]
  - STAPHYLOCOCCAL INFECTION [None]
  - HYPERTENSION [None]
  - FRACTURED SACRUM [None]
